FAERS Safety Report 15695195 (Version 2)
Quarter: 2019Q4

REPORT INFORMATION
  Report Type: Spontaneous
  Country: US (occurrence: US)
  Receive Date: 20181206
  Receipt Date: 20191216
  Transmission Date: 20200122
  Serious: No
  Sender: FDA-Public Use
  Company Number: US-ENDO PHARMACEUTICALS INC-2018-042126

PATIENT
  Sex: Male

DRUGS (2)
  1. XIAFLEX [Suspect]
     Active Substance: COLLAGENASE CLOSTRIDIUM HISTOLYTICUM
     Indication: PEYRONIE^S DISEASE
     Dosage: UNK, UNK CYCLE; INJECTION FOR FIRST PLAQUE
     Route: 026
  2. XIAFLEX [Suspect]
     Active Substance: COLLAGENASE CLOSTRIDIUM HISTOLYTICUM
     Dosage: UNK FIRST CYCLE, INJECTION FOR SECOND PLAQUE
     Route: 026

REACTIONS (2)
  - Discomfort [Unknown]
  - Contusion [Unknown]
